FAERS Safety Report 24993395 (Version 1)
Quarter: 2025Q1

REPORT INFORMATION
  Report Type: Spontaneous
  Country: BG (occurrence: BG)
  Receive Date: 20250221
  Receipt Date: 20250221
  Transmission Date: 20250409
  Serious: Yes (Other)
  Sender: JUBILANT
  Company Number: BG-JUBILANT CADISTA PHARMACEUTICALS-2025BG000236

PATIENT
  Age: 71 Year
  Sex: Male

DRUGS (8)
  1. VALSARTAN [Suspect]
     Active Substance: VALSARTAN
     Indication: Hypertension
     Dosage: 160 MG, ONCE PER DAY IN MORNING
     Route: 065
     Dates: start: 2015, end: 2018
  2. AMLODIPINE AND OLMESARTAN MEDOXOMIL [Suspect]
     Active Substance: AMLODIPINE BESYLATE\OLMESARTAN MEDOXOMIL
     Indication: Hypertension
     Dosage: 20MG/5MG ONCE IN THE EVENING
     Route: 065
     Dates: start: 202207, end: 202302
  3. AMLODIPINE AND OLMESARTAN MEDOXOMIL [Suspect]
     Active Substance: AMLODIPINE BESYLATE\OLMESARTAN MEDOXOMIL
     Dosage: 20MG/5MG ONCE IN THE MORNING
     Route: 065
     Dates: start: 202202
  4. HYDROCHLOROTHIAZIDE\VALSARTAN [Suspect]
     Active Substance: HYDROCHLOROTHIAZIDE\VALSARTAN
     Indication: Product used for unknown indication
     Dosage: 160MG/12.5MG ONCE IN THE MORNING
     Route: 065
     Dates: start: 2018, end: 202208
  5. OLMESARTAN MEDOXOMIL AND HYDROCHLOROTHIAZIDE [Suspect]
     Active Substance: HYDROCHLOROTHIAZIDE\OLMESARTAN MEDOXOMIL
     Indication: Hypertension
     Route: 065
     Dates: start: 202207, end: 202302
  6. MOXONIDINE [Suspect]
     Active Substance: MOXONIDINE
     Indication: Hypertension
     Route: 065
     Dates: start: 2015
  7. AMIKACIN [Concomitant]
     Active Substance: AMIKACIN
     Indication: Wound infection
     Dosage: 1000 MG, 2 TIMES PER DAY A WEEK
     Route: 030
     Dates: start: 202302
  8. AMIKACIN [Concomitant]
     Active Substance: AMIKACIN
     Dosage: 500 MG, 2 TIMES PER DAY
     Route: 030

REACTIONS (2)
  - Basal cell carcinoma [Unknown]
  - Squamous cell carcinoma [Unknown]
